FAERS Safety Report 6346882-8 (Version None)
Quarter: 2009Q3

REPORT INFORMATION
  Report Type: 
  Country: None (occurrence: None)
  Receive Date: 20090909
  Receipt Date: 20090909
  Transmission Date: 20100115
  Serious: Yes (Hospitalization, Disabling)
  Sender: FDA-Public Use
  Company Number: None

PATIENT
  Sex: Female
  Weight: 52.1637 kg

DRUGS (2)
  1. CIPROFLOXACIN [Suspect]
     Indication: DIVERTICULITIS
     Dosage: 500 MG BID PO
     Route: 048
     Dates: start: 20090729, end: 20090804
  2. METRONIDAZOLE [Suspect]
     Indication: DIVERTICULITIS
     Dosage: 500MG TID PO
     Route: 048
     Dates: start: 20090729, end: 20090806

REACTIONS (17)
  - APHASIA [None]
  - ASTHENIA [None]
  - BALANCE DISORDER [None]
  - CONFUSIONAL STATE [None]
  - DISTURBANCE IN ATTENTION [None]
  - DIZZINESS [None]
  - DYSKINESIA [None]
  - DYSPHAGIA [None]
  - GAIT DISTURBANCE [None]
  - HALLUCINATION [None]
  - MENTAL IMPAIRMENT [None]
  - MYALGIA [None]
  - NIGHTMARE [None]
  - PAIN IN EXTREMITY [None]
  - PARALYSIS [None]
  - SPEECH DISORDER [None]
  - VISION BLURRED [None]
